FAERS Safety Report 10082364 (Version 1)
Quarter: 2014Q2

REPORT INFORMATION
  Report Type: Spontaneous
  Country: US (occurrence: None)
  Receive Date: 20140415
  Receipt Date: 20140415
  Transmission Date: 20141212
  Serious: No
  Sender: FDA-Public Use
  Company Number: None

PATIENT
  Age: 69 Year
  Sex: Male
  Weight: 73.48 kg

DRUGS (2)
  1. ATORVASTATIN [Suspect]
     Indication: CORONARY ARTERY DISEASE
     Dosage: 1 PILL
     Route: 048
  2. ATORVASTATIN [Suspect]
     Indication: DIABETES MELLITUS
     Dosage: 1 PILL
     Route: 048

REACTIONS (1)
  - Lipids increased [None]
